FAERS Safety Report 6981240-4 (Version None)
Quarter: 2010Q3

REPORT INFORMATION
  Report Type: 
  Country: None (occurrence: None)
  Receive Date: 20100914
  Receipt Date: 20100901
  Transmission Date: 20110219
  Serious: Yes (Other)
  Sender: FDA-Public Use
  Company Number: US-PFIZER INC-2010072428

PATIENT
  Sex: Female

DRUGS (5)
  1. LYRICA [Suspect]
     Indication: NEURALGIA
     Dosage: 25 MG, 3X/DAY
     Route: 048
     Dates: start: 20100201
  2. LYRICA [Suspect]
     Indication: NEUROPATHY PERIPHERAL
     Dosage: 50 MG, 3X/DAY
     Dates: start: 20100101
  3. LYRICA [Suspect]
     Indication: VULVOVAGINAL PAIN
     Dosage: 75 MG, 3X/DAY
     Dates: start: 20100101
  4. LYRICA [Suspect]
     Dosage: 150 MG, 3X/DAY
     Dates: start: 20100401
  5. ULTRACET [Concomitant]
     Dosage: 37.5/325 MG, UNK

REACTIONS (7)
  - ABNORMAL DREAMS [None]
  - DIZZINESS [None]
  - DRUG INEFFECTIVE [None]
  - HEADACHE [None]
  - NAUSEA [None]
  - VERTIGO [None]
  - VISION BLURRED [None]
